FAERS Safety Report 18254676 (Version 2)
Quarter: 2020Q3

REPORT INFORMATION
  Report Type: Spontaneous
  Country: US (occurrence: US)
  Receive Date: 20200910
  Receipt Date: 20200925
  Transmission Date: 20201103
  Serious: Yes (Hospitalization)
  Sender: FDA-Public Use
  Company Number: US-AKCEA THERAPEUTICS-2020IS001322

PATIENT
  Age: 70 Year
  Sex: Male

DRUGS (3)
  1. TEGSEDI [Suspect]
     Active Substance: INOTERSEN SODIUM
     Indication: HEREDITARY NEUROPATHIC AMYLOIDOSIS
     Route: 058
  2. TEGSEDI [Suspect]
     Active Substance: INOTERSEN SODIUM
     Indication: POLYNEUROPATHY
     Route: 058
  3. ISSD (INTEGRATED SYRINGE SAFETY DEVICE) [Suspect]
     Active Substance: DEVICE

REACTIONS (9)
  - Surgery [Unknown]
  - White blood cells urine positive [Unknown]
  - Bacterial test positive [Unknown]
  - General physical condition abnormal [Unknown]
  - Urine protein/creatinine ratio increased [Unknown]
  - Urinary casts [Unknown]
  - Protein total increased [Unknown]
  - Urine ketone body present [Unknown]
  - Protein urine present [Unknown]

NARRATIVE: CASE EVENT DATE: 20200901
